FAERS Safety Report 15797524 (Version 3)
Quarter: 2019Q1

REPORT INFORMATION
  Report Type: Report from Study
  Country: US (occurrence: US)
  Receive Date: 20190108
  Receipt Date: 20190218
  Transmission Date: 20190417
  Serious: Yes (Other)
  Sender: FDA-Public Use
  Company Number: PHEH2019US000569

PATIENT
  Sex: Female

DRUGS (2)
  1. SYNTHROID [Concomitant]
     Active Substance: LEVOTHYROXINE SODIUM
     Indication: PRODUCT USED FOR UNKNOWN INDICATION
     Dosage: UNK
     Route: 065
  2. AFINITOR [Suspect]
     Active Substance: EVEROLIMUS
     Indication: PRODUCT USED FOR UNKNOWN INDICATION
     Dosage: UNK
     Route: 065

REACTIONS (10)
  - Intestinal obstruction [Unknown]
  - Drug resistance [Unknown]
  - Viral infection [Unknown]
  - Pollakiuria [Unknown]
  - Oedema peripheral [Unknown]
  - Headache [Unknown]
  - Genital swelling [Unknown]
  - Infection [Unknown]
  - Urinary tract infection [Unknown]
  - Dehydration [Unknown]
